FAERS Safety Report 4488292-4 (Version None)
Quarter: 2004Q4

REPORT INFORMATION
  Report Type: 
  Country: None (occurrence: None)
  Receive Date: 20041026
  Receipt Date: 20041018
  Transmission Date: 20050328
  Serious: Yes (Other)
  Sender: FDA-Public Use
  Company Number: EM2004-0459

PATIENT
  Sex: Male

DRUGS (5)
  1. PROLEUKIN [Suspect]
     Indication: RENAL CELL CARCINOMA STAGE UNSPECIFIED
     Dosage: 18 MIU/M2, QD X72 HOURS, CONT IV INFUS
     Route: 042
     Dates: start: 20020903, end: 20020904
  2. DEXTROSE           (D5W) (GLUCOSE INJECTION) [Concomitant]
  3. ALBUMIN (HUMAN) [Concomitant]
  4. FAMOTIDINE [Concomitant]
  5. ONDANSETRON HCL [Concomitant]

REACTIONS (1)
  - ATRIAL FIBRILLATION [None]
